FAERS Safety Report 7626956-1 (Version None)
Quarter: 2011Q3

REPORT INFORMATION
  Report Type: 
  Country: None (occurrence: None)
  Receive Date: 20110721
  Receipt Date: 20110714
  Transmission Date: 20111222
  Serious: Yes (Other)
  Sender: FDA-Public Use
  Company Number: US-PFIZER INC-2011160112

PATIENT
  Sex: Female
  Weight: 68.027 kg

DRUGS (4)
  1. PRISTIQ [Suspect]
     Dosage: 100 MG, UNKNOWN FREQUENCY
     Dates: start: 20090101
  2. PRISTIQ [Suspect]
     Indication: DEPRESSION
     Dosage: 50 MG, 1X/DAY
     Route: 048
     Dates: start: 20060101
  3. GEODON [Suspect]
     Dosage: UNK
  4. KLONOPIN [Concomitant]
     Indication: ANXIETY
     Dosage: UNK, AS NEEDED

REACTIONS (6)
  - DRUG SCREEN POSITIVE [None]
  - FEELING ABNORMAL [None]
  - CHEST PAIN [None]
  - MUSCULOSKELETAL DISCOMFORT [None]
  - BACK DISORDER [None]
  - FALL [None]
